FAERS Safety Report 5728501-4 (Version None)
Quarter: 2008Q2

REPORT INFORMATION
  Report Type: 
  Country: None (occurrence: None)
  Receive Date: 20080502
  Receipt Date: 20080502
  Transmission Date: 20081010
  Serious: Yes (Hospitalization)
  Sender: FDA-Public Use
  Company Number: None

PATIENT
  Age: 38 Year
  Sex: Female

DRUGS (4)
  1. KALETRA [Suspect]
     Indication: ACQUIRED IMMUNODEFICIENCY SYNDROME
     Dosage: 2 TABLETS  BID  PO
     Route: 048
  2. KALETRA [Suspect]
     Indication: ANTIRETROVIRAL THERAPY
     Dosage: 2 TABLETS  BID  PO
     Route: 048
  3. KALETRA [Suspect]
     Indication: HIV INFECTION
     Dosage: 2 TABLETS  BID  PO
     Route: 048
  4. ADVAIR DISKUS 250/50 [Suspect]
     Indication: ASTHMA
     Dosage: 1 PUFF BID INHAL
     Route: 055
     Dates: start: 20061211, end: 20070813

REACTIONS (5)
  - ADRENAL INSUFFICIENCY [None]
  - DRUG LEVEL ABOVE THERAPEUTIC [None]
  - FLUID RETENTION [None]
  - HYPOTENSION [None]
  - RENAL FAILURE ACUTE [None]
